FAERS Safety Report 17284282 (Version 2)
Quarter: 2020Q3

REPORT INFORMATION
  Report Type: Spontaneous
  Country: US (occurrence: US)
  Receive Date: 20200117
  Receipt Date: 20200814
  Transmission Date: 20201102
  Serious: Yes (Other)
  Sender: FDA-Public Use
  Company Number: US-ASTRAZENECA-2020SE05846

PATIENT
  Age: 25886 Day
  Sex: Male
  Weight: 104.3 kg

DRUGS (80)
  1. NEXIUM [Suspect]
     Active Substance: ESOMEPRAZOLE MAGNESIUM
     Indication: GASTROOESOPHAGEAL REFLUX DISEASE
     Dosage: 40.0MG UNKNOWN
     Route: 048
     Dates: start: 2008, end: 2017
  2. PROTONIX [Suspect]
     Active Substance: PANTOPRAZOLE SODIUM
     Indication: GASTROOESOPHAGEAL REFLUX DISEASE
     Route: 065
     Dates: start: 2018
  3. TAMSULOSIN [Concomitant]
     Active Substance: TAMSULOSIN
     Indication: BLADDER DISORDER
     Dates: start: 2018
  4. R?TANNA [Concomitant]
     Active Substance: CHLORPHENIRAMINE TANNATE\PHENYLEPHRINE TANNATE
  5. HYDROCORTISONE BUTYR [Concomitant]
  6. FLUOROPLEX [Concomitant]
     Active Substance: FLUOROURACIL
  7. NEXIUM [Suspect]
     Active Substance: ESOMEPRAZOLE MAGNESIUM
     Indication: GASTROOESOPHAGEAL REFLUX DISEASE
     Route: 048
     Dates: start: 200301, end: 201412
  8. JANUVIA [Concomitant]
     Active Substance: SITAGLIPTIN PHOSPHATE
     Indication: DIABETES MELLITUS
     Dates: start: 2010
  9. PIOGLITAZONE. [Concomitant]
     Active Substance: PIOGLITAZONE
     Indication: DIABETES MELLITUS
     Dates: start: 2010
  10. SODIUM BICARBONATE. [Concomitant]
     Active Substance: SODIUM BICARBONATE
     Indication: ANTACID THERAPY
     Dates: start: 2016
  11. METOPROLOL. [Concomitant]
     Active Substance: METOPROLOL
     Indication: HYPERTENSION
     Dates: start: 2010
  12. ZOVIRAX [Concomitant]
     Active Substance: ACYCLOVIR
  13. FLUOCINONIDE. [Concomitant]
     Active Substance: FLUOCINONIDE
  14. MELOXICAM. [Concomitant]
     Active Substance: MELOXICAM
  15. MUPIROCIN. [Concomitant]
     Active Substance: MUPIROCIN
  16. SULFAMETHOXAZOLE [Concomitant]
     Active Substance: SULFAMETHOXAZOLE
  17. SITAGLIPTIN PHOSPHATE [Concomitant]
     Active Substance: SITAGLIPTIN PHOSPHATE
  18. SMZ/TMP [Concomitant]
     Active Substance: SULFAMETHOXAZOLE\TRIMETHOPRIM
  19. CENTRUM SILVER [Concomitant]
     Active Substance: MINERALS\VITAMINS
  20. MULTIVITAMINS [Concomitant]
     Active Substance: VITAMINS
  21. NEXIUM [Suspect]
     Active Substance: ESOMEPRAZOLE MAGNESIUM
     Indication: GASTROOESOPHAGEAL REFLUX DISEASE
     Dosage: GENERIC40.0MG UNKNOWN
     Route: 065
     Dates: start: 2012, end: 2014
  22. ATORVASTATIN [Concomitant]
     Active Substance: ATORVASTATIN
     Indication: BLOOD CHOLESTEROL INCREASED
     Dates: start: 2018
  23. FISH OIL [Concomitant]
     Active Substance: FISH OIL
     Indication: CARDIAC DISORDER
     Dates: start: 2016
  24. FAMOTIDINE. [Concomitant]
     Active Substance: FAMOTIDINE
     Dates: start: 2016
  25. LEVOFLOXACIN. [Concomitant]
     Active Substance: LEVOFLOXACIN
  26. PROTONIX [Suspect]
     Active Substance: PANTOPRAZOLE SODIUM
     Indication: GASTROOESOPHAGEAL REFLUX DISEASE
     Dosage: GENERIC? DELAYED RELEASE20.0MG UNKNOWN
     Route: 048
     Dates: start: 20180808
  27. TUMS [Concomitant]
     Active Substance: CALCIUM CARBONATE
     Dates: start: 2016
  28. METFORMIN [Concomitant]
     Active Substance: METFORMIN HYDROCHLORIDE
  29. CIPROFLOXACIN. [Concomitant]
     Active Substance: CIPROFLOXACIN
  30. DETROL [Concomitant]
     Active Substance: TOLTERODINE TARTRATE
  31. HYDROXYZINE [Concomitant]
     Active Substance: HYDROXYZINE HYDROCHLORIDE
  32. CLOBETASOL [Concomitant]
     Active Substance: CLOBETASOL
  33. METHYLPREDNISOLONE. [Concomitant]
     Active Substance: METHYLPREDNISOLONE
  34. MONTELUKAST [Concomitant]
     Active Substance: MONTELUKAST SODIUM
  35. BROMPHENIR?PSEUDOEPHED [Concomitant]
  36. PHENAZOPYRIDINE. [Concomitant]
     Active Substance: PHENAZOPYRIDINE
  37. XYLOCAINE [Concomitant]
     Active Substance: LIDOCAINE HYDROCHLORIDE
  38. FINASTERIDE. [Concomitant]
     Active Substance: FINASTERIDE
     Indication: BLADDER DISORDER
     Dates: start: 2018
  39. SCHIFF MOVE FREE [Concomitant]
     Active Substance: DIETARY SUPPLEMENT
     Indication: ARTHRALGIA
     Dates: start: 2016
  40. NYSTATIN. [Concomitant]
     Active Substance: NYSTATIN
  41. IBUPROFEN. [Concomitant]
     Active Substance: IBUPROFEN
  42. DICYCLOMINE [Concomitant]
     Active Substance: DICYCLOMINE HYDROCHLORIDE
  43. CIALIS [Concomitant]
     Active Substance: TADALAFIL
  44. DESOXIMETASONE. [Concomitant]
     Active Substance: DESOXIMETASONE
  45. FLOMAX [Concomitant]
     Active Substance: TAMSULOSIN HYDROCHLORIDE
  46. ANTIBX [Concomitant]
  47. GLYBURIDE. [Concomitant]
     Active Substance: GLYBURIDE
  48. PROTONIX [Suspect]
     Active Substance: PANTOPRAZOLE SODIUM
     Indication: GASTROOESOPHAGEAL REFLUX DISEASE
     Route: 065
     Dates: start: 200301, end: 201412
  49. TRIMETHOPRIM. [Concomitant]
     Active Substance: TRIMETHOPRIM
  50. ECONAZOLE NITRATE. [Concomitant]
     Active Substance: ECONAZOLE NITRATE
  51. CLOTRIMAZOLE?BELAMETHASONE [Concomitant]
  52. OXYCODONE?ACETAMINOPHEN [Concomitant]
     Active Substance: ACETAMINOPHEN\OXYCODONE HYDROCHLORIDE
  53. BYDUREON [Concomitant]
     Active Substance: EXENATIDE
  54. CLINDAMYCIN. [Concomitant]
     Active Substance: CLINDAMYCIN
  55. BENZONATATE. [Concomitant]
     Active Substance: BENZONATATE
  56. AMLODIPINE BESYLATE. [Concomitant]
     Active Substance: AMLODIPINE BESYLATE
  57. METOPROLOL TARTRATE. [Concomitant]
     Active Substance: METOPROLOL TARTRATE
  58. SILDENAFIL. [Concomitant]
     Active Substance: SILDENAFIL
  59. HYDROCORTISONE BUTYRATE. [Concomitant]
     Active Substance: HYDROCORTISONE BUTYRATE
  60. PRILOSEC [Suspect]
     Active Substance: OMEPRAZOLE MAGNESIUM
     Indication: GASTROOESOPHAGEAL REFLUX DISEASE
     Route: 048
     Dates: start: 2003, end: 2008
  61. LISINOPRIL. [Concomitant]
     Active Substance: LISINOPRIL
     Indication: HYPERTENSION
     Dates: start: 2018
  62. ASPIRIN. [Concomitant]
     Active Substance: ASPIRIN
     Indication: BLOOD VISCOSITY ABNORMAL
     Dosage: 81.0MG UNKNOWN
     Dates: start: 2016
  63. NAPROXEN. [Concomitant]
     Active Substance: NAPROXEN
  64. ALTABAX [Concomitant]
     Active Substance: RETAPAMULIN
  65. CYCLOBENZAPRINE. [Concomitant]
     Active Substance: CYCLOBENZAPRINE
  66. CEFDINIR. [Concomitant]
     Active Substance: CEFDINIR
  67. AMOX?CLAV [Concomitant]
     Active Substance: AMOXICILLIN\CLAVULANATE POTASSIUM
  68. SPIRONOLACTONE. [Concomitant]
     Active Substance: SPIRONOLACTONE
  69. PRILOSEC [Suspect]
     Active Substance: OMEPRAZOLE MAGNESIUM
     Indication: GASTROOESOPHAGEAL REFLUX DISEASE
     Route: 048
     Dates: start: 200301, end: 201412
  70. PROTONIX [Suspect]
     Active Substance: PANTOPRAZOLE SODIUM
     Indication: GASTROOESOPHAGEAL REFLUX DISEASE
     Dosage: GENERIC20.0MG UNKNOWN
     Route: 065
     Dates: start: 2015
  71. ALLOPURINOL. [Concomitant]
     Active Substance: ALLOPURINOL
     Indication: NEPHROLITHIASIS
     Dates: start: 2016
  72. GLIMEPIRIDE. [Concomitant]
     Active Substance: GLIMEPIRIDE
     Indication: DIABETES MELLITUS
     Dates: start: 2010
  73. TYLENOL [Concomitant]
     Active Substance: ACETAMINOPHEN
     Indication: PAIN
     Dates: start: 2010
  74. AFRIN [Concomitant]
     Active Substance: OXYMETAZOLINE
     Indication: ANALGESIC THERAPY
     Dates: start: 2019
  75. TRIAMCINOLONE [Concomitant]
     Active Substance: TRIAMCINOLONE
  76. CEPHALEXIN. [Concomitant]
     Active Substance: CEPHALEXIN
  77. PREDNISONE. [Concomitant]
     Active Substance: PREDNISONE
  78. KETOCONAZOLE. [Concomitant]
     Active Substance: KETOCONAZOLE
  79. GLUCOSE [Concomitant]
     Active Substance: DEXTROSE
  80. DECADRON [Concomitant]
     Active Substance: DEXAMETHASONE

REACTIONS (3)
  - Chronic kidney disease [Not Recovered/Not Resolved]
  - Renal impairment [Unknown]
  - Renal failure [Unknown]

NARRATIVE: CASE EVENT DATE: 20161212
